FAERS Safety Report 8370310-4 (Version None)
Quarter: 2012Q2

REPORT INFORMATION
  Report Type: 
  Country: None (occurrence: None)
  Receive Date: 20120518
  Receipt Date: 20110927
  Transmission Date: 20120825
  Serious: No
  Sender: FDA-Public Use
  Company Number: US-ASTRAZENECA-2011SE61443

PATIENT
  Age: 71 Year
  Sex: Male

DRUGS (4)
  1. CALCIUM CARBONATE [Suspect]
  2. PRILOSEC OTC [Suspect]
     Route: 048
  3. PEPCID [Suspect]
  4. ANTIHYPERTENSIVES [Concomitant]

REACTIONS (2)
  - URTICARIA [None]
  - INAPPROPRIATE SCHEDULE OF DRUG ADMINISTRATION [None]
